FAERS Safety Report 17262868 (Version 1)
Quarter: 2020Q1

REPORT INFORMATION
  Report Type: Report from Study
  Country: US (occurrence: US)
  Receive Date: 20200113
  Receipt Date: 20200113
  Transmission Date: 20200409
  Serious: No
  Sender: FDA-Public Use
  Company Number: NVSC2020US005142

PATIENT
  Sex: Female

DRUGS (1)
  1. AZOPT [Suspect]
     Active Substance: BRINZOLAMIDE
     Indication: PRODUCT USED FOR UNKNOWN INDICATION
     Dosage: UNK
     Route: 065

REACTIONS (7)
  - Lacrimation increased [Unknown]
  - Fatigue [Unknown]
  - Alopecia [Unknown]
  - Dry throat [Unknown]
  - Dyspnoea [Unknown]
  - Dry eye [Unknown]
  - Dry mouth [Unknown]
